FAERS Safety Report 15961720 (Version 1)
Quarter: 2019Q1

REPORT INFORMATION
  Report Type: Spontaneous
  Country: JP (occurrence: JP)
  Receive Date: 20190214
  Receipt Date: 20190214
  Transmission Date: 20190417
  Serious: Yes (Other)
  Sender: FDA-Public Use
  Company Number: JP-TEVA-201902_00002865

PATIENT
  Age: 8 Decade
  Sex: Female

DRUGS (4)
  1. PREDNISOLONE TABLETS 5MG. [Suspect]
     Active Substance: PREDNISOLONE
     Indication: PRODUCT USED FOR UNKNOWN INDICATION
     Route: 065
  2. ENTYVIO [Suspect]
     Active Substance: VEDOLIZUMAB
     Indication: COLITIS ULCERATIVE
     Route: 041
     Dates: start: 20190117
  3. LEUKERIN [Concomitant]
     Active Substance: MERCAPTOPURINE
     Route: 065
     Dates: end: 20190117
  4. PREDNISOLONE TABLETS 5MG. [Suspect]
     Active Substance: PREDNISOLONE
     Route: 065
     Dates: start: 20190117

REACTIONS (1)
  - Cytomegalovirus infection [Not Recovered/Not Resolved]

NARRATIVE: CASE EVENT DATE: 20190201
